FAERS Safety Report 9176114 (Version 1)
Quarter: 2012Q4

REPORT INFORMATION
  Report Type: 
  Country: US (occurrence: US)
  Receive Date: 20120918
  Receipt Date: 20120918
  Transmission Date: 20130627
  Serious: Yes (Hospitalization, Other)
  Sender: FDA-Public Use
  Company Number: US-RB-044512-12

PATIENT
  Age: 58 Year
  Sex: Female

DRUGS (5)
  1. SUBOXONE TABLET [Suspect]
     Indication: PAIN MANAGEMENT
     Route: 060
     Dates: start: 2004, end: 2010
  2. SUBOXONE FILM [Suspect]
     Indication: PAIN MANAGEMENT
     Dosage: Suboxone film
     Route: 065
     Dates: start: 2010, end: 201008
  3. SUBOXONE FILM [Suspect]
     Dosage: Suboxone film
     Route: 060
     Dates: start: 201101, end: 201208
  4. CYMBALTA [Concomitant]
     Indication: DEPRESSION
     Dosage: Dosing details unknown
     Route: 065
  5. ZONEGRAN [Concomitant]
     Indication: NERVE BLOCK
     Dosage: Dosing details unknown
     Route: 065

REACTIONS (3)
  - Off label use [Recovered/Resolved]
  - Hip fracture [Recovered/Resolved]
  - Fall [Recovered/Resolved]
